FAERS Safety Report 9165609 (Version 1)
Quarter: 2013Q1

REPORT INFORMATION
  Report Type: Spontaneous
  Country: US (occurrence: US)
  Receive Date: 20130315
  Receipt Date: 20130315
  Transmission Date: 20140127
  Serious: Yes (Hospitalization, Other)
  Sender: FDA-Public Use
  Company Number: US-JNJFOC-20130303246

PATIENT
  Age: 58 None
  Sex: Male
  Weight: 99.79 kg

DRUGS (3)
  1. DURAGESIC [Suspect]
     Indication: PAIN
     Route: 062
     Dates: start: 2001
  2. OXYCODONE [Concomitant]
     Indication: PAIN
     Dosage: 15 MG EVERY 4-6 HOURS
     Route: 048
  3. XANAX [Concomitant]
     Route: 065

REACTIONS (4)
  - Loss of consciousness [Recovered/Resolved]
  - Dyspnoea [Unknown]
  - Drug screen negative [Not Recovered/Not Resolved]
  - Withdrawal syndrome [Unknown]
